FAERS Safety Report 10061104 (Version 1)
Quarter: 2014Q2

REPORT INFORMATION
  Report Type: Spontaneous
  Country: FR (occurrence: FR)
  Receive Date: 20140406
  Receipt Date: 20140406
  Transmission Date: 20141212
  Serious: Yes (Hospitalization)
  Sender: FDA-Public Use
  Company Number: FR-MERCK-1404FRA000147

PATIENT
  Age: 55 Year
  Sex: Male
  Weight: 102 kg

DRUGS (10)
  1. VICTRELIS [Suspect]
     Indication: HEPATITIS C
     Dosage: 800 MG, TID
     Dates: start: 20110518, end: 20120328
  2. VIRAFERONPEG [Suspect]
     Dosage: 150 MICROGRAM, QW
     Dates: start: 20110413, end: 20120328
  3. RIBAVIRIN [Suspect]
     Indication: HEPATITIS C
     Dosage: 1400 MG, QD
     Dates: start: 20110413, end: 20120328
  4. NOVOMIX [Concomitant]
     Indication: DIABETES MELLITUS
     Dosage: 50 IU, BID
     Dates: start: 2007
  5. RAMIPRIL [Concomitant]
     Indication: HYPERTENSION
     Dosage: 1 DF, QD
     Dates: start: 20100430, end: 20111228
  6. NEORECORMON [Concomitant]
     Indication: ANAEMIA
     Dosage: 30000 IU, QW
     Dates: start: 20110808, end: 20120328
  7. CRESTOR [Concomitant]
     Indication: DYSLIPIDAEMIA
     Dosage: 50 MG, QD
     Dates: start: 20090313, end: 20111228
  8. SEROPRAM [Concomitant]
     Indication: DEPRESSION
     Dosage: 20 MG, QD
     Dates: start: 20090619
  9. NOVORAPID [Concomitant]
     Indication: DIABETES MELLITUS
     Dosage: 6 IU, BID
     Dates: start: 20090703
  10. OMEPRAZOLE [Concomitant]
     Dosage: 20 MG, QD
     Dates: start: 20100530

REACTIONS (2)
  - Anal fissure [Recovered/Resolved]
  - Proctalgia [Recovered/Resolved]
